FAERS Safety Report 9861851 (Version 3)
Quarter: 2014Q1

REPORT INFORMATION
  Report Type: Report from Study
  Country: US (occurrence: US)
  Receive Date: 20140203
  Receipt Date: 20140214
  Transmission Date: 20141002
  Serious: Yes (Hospitalization)
  Sender: FDA-Public Use
  Company Number: US-JNJFOC-20140118485

PATIENT
  Age: 13 Year
  Sex: Female
  Weight: 56.4 kg

DRUGS (8)
  1. REMICADE [Suspect]
     Indication: CROHN^S DISEASE
     Route: 042
     Dates: start: 20120113, end: 20120809
  2. CELEBREX [Concomitant]
     Route: 048
  3. HUMIRA [Concomitant]
     Route: 065
     Dates: start: 20121129
  4. FERREX [Concomitant]
     Route: 048
  5. 5-ASA [Concomitant]
     Route: 048
  6. PREDNISONE [Concomitant]
     Route: 065
  7. HYOSCYAMINE [Concomitant]
     Route: 065
  8. OMEPRAZOLE [Concomitant]
     Route: 048

REACTIONS (2)
  - Small intestinal stenosis [Recovered/Resolved]
  - Medical device complication [Recovered/Resolved]
